FAERS Safety Report 20890838 (Version 1)
Quarter: 2022Q2

REPORT INFORMATION
  Report Type: Report from Study
  Country: KW (occurrence: KW)
  Receive Date: 20220530
  Receipt Date: 20220530
  Transmission Date: 20220720
  Serious: Yes (Other)
  Sender: FDA-Public Use
  Company Number: KW-JNJFOC-20220550777

PATIENT
  Age: 56 Year
  Sex: Male

DRUGS (1)
  1. BORTEZOMIB [Suspect]
     Active Substance: BORTEZOMIB
     Indication: Plasma cell myeloma
     Dosage: 2.2 MILLIGRAM, 1/WEEK
     Route: 042
     Dates: start: 20210427, end: 20220201

REACTIONS (1)
  - Bone marrow transplant [Unknown]

NARRATIVE: CASE EVENT DATE: 20220524
